FAERS Safety Report 8088549 (Version 2)
Quarter: 2013Q1

REPORT INFORMATION
  Report Type: Spontaneous
  Country: US (occurrence: US)
  Receive Date: 20110812
  Receipt Date: 20130118
  Transmission Date: 20140127
  Serious: Yes (Other)
  Sender: FDA-Public Use
  Company Number: US-BAYER-2011-072013

PATIENT
  Age: 34 Year
  Sex: Female
  Weight: 120.18 kg

DRUGS (13)
  1. YAZ [Suspect]
     Indication: PREMENSTRUAL DYSPHORIC DISORDER
     Dosage: UNK
     Dates: start: 200905, end: 200907
  2. YAZ [Suspect]
     Indication: PREMENSTRUAL SYNDROME
  3. TOPAMAX [Concomitant]
     Indication: MIGRAINE
     Dosage: 50 MG, BID
     Dates: start: 20090509
  4. TOPAMAX [Concomitant]
     Indication: MIGRAINE
     Dosage: UNK
     Dates: start: 20090613
  5. CORTISPORIN OTIC [Concomitant]
     Indication: OTITIS EXTERNA
     Dosage: 4 DROPS, QID, FOR 4 DAYS
     Dates: start: 20090509
  6. CORTISPORIN OTIC [Concomitant]
     Indication: OTITIS EXTERNA
     Dosage: UNK
     Dates: start: 20090613
  7. ALBUTEROL INHALER [Concomitant]
     Indication: ASTHMA
     Dosage: 2 PUFF(S), 4-6 HRS
     Dates: start: 20090509
  8. ALBUTEROL INHALER [Concomitant]
     Indication: COUGH
     Dosage: UNK
     Dates: start: 20090613
  9. ALBUTEROL INHALER [Concomitant]
     Indication: WHEEZING
  10. ELAVIL [Concomitant]
     Indication: MIGRAINE
     Dosage: UNK
     Dates: start: 20090613
  11. PROPRANOLOL [Concomitant]
     Indication: MIGRAINE
     Dosage: 40 MG, BID
     Route: 048
     Dates: start: 20090613
  12. FLUTICASONE HFA [Concomitant]
     Indication: ASTHMA
     Dosage: 44 ?G, 2 INHALATIONS
     Dates: start: 20090613
  13. OXYCODONE/APAP [Concomitant]
     Dosage: 5/325 MG
     Dates: start: 20090701

REACTIONS (6)
  - Deep vein thrombosis [None]
  - Pain [None]
  - Injury [None]
  - Anxiety [None]
  - Anhedonia [None]
  - Psychological trauma [None]
